FAERS Safety Report 8270101-9 (Version None)
Quarter: 2012Q2

REPORT INFORMATION
  Report Type: 
  Country: None (occurrence: None)
  Receive Date: 20120410
  Receipt Date: 20120328
  Transmission Date: 20120825
  Serious: Yes (Hospitalization)
  Sender: FDA-Public Use
  Company Number: PHHY2012JP024971

PATIENT
  Age: 44 Year
  Sex: Male
  Weight: 83 kg

DRUGS (3)
  1. PREDNISOLONE [Suspect]
     Indication: INTERSTITIAL LUNG DISEASE
     Dosage: 30 MG, UNK
     Route: 048
  2. NEORAL [Suspect]
     Indication: INTERSTITIAL LUNG DISEASE
     Dosage: 200 MG, UNK
  3. PREDNISOLONE [Suspect]
     Dosage: 60 MG, DAILY

REACTIONS (8)
  - ALVEOLAR PROTEINOSIS [None]
  - RESPIRATORY FAILURE [None]
  - LUNG CONSOLIDATION [None]
  - BRONCHOPULMONARY ASPERGILLOSIS [None]
  - RESTRICTIVE PULMONARY DISEASE [None]
  - PULMONARY FIBROSIS [None]
  - PULMONARY OEDEMA [None]
  - CREPITATIONS [None]
